FAERS Safety Report 4787309-7 (Version None)
Quarter: 2005Q4

REPORT INFORMATION
  Report Type: 
  Country: None (occurrence: None)
  Receive Date: 20051003
  Receipt Date: 20050920
  Transmission Date: 20060501
  Serious: Yes (Other)
  Sender: FDA-Public Use
  Company Number: HQWYE604722SEP05

PATIENT
  Age: 34 Year
  Sex: Male
  Weight: 86.26 kg

DRUGS (4)
  1. EFFEXOR XR [Suspect]
     Indication: DEPRESSION
     Dosage: SEE IMAGE
     Route: 048
     Dates: start: 20040301, end: 20050301
  2. EFFEXOR XR [Suspect]
     Indication: MOOD ALTERED
     Dosage: SEE IMAGE
     Route: 048
     Dates: start: 20040301, end: 20050301
  3. EFFEXOR XR [Suspect]
     Indication: DEPRESSION
     Dosage: SEE IMAGE
     Route: 048
     Dates: start: 20050301
  4. EFFEXOR XR [Suspect]
     Indication: MOOD ALTERED
     Dosage: SEE IMAGE
     Route: 048
     Dates: start: 20050301

REACTIONS (8)
  - ABORTION SPONTANEOUS [None]
  - DRUG DOSE OMISSION [None]
  - DRUG WITHDRAWAL SYNDROME [None]
  - EJACULATION DELAYED [None]
  - ERECTILE DYSFUNCTION [None]
  - PREGNANCY OF PARTNER [None]
  - SOMNOLENCE [None]
  - TRANSMISSION OF DRUG VIA SEMEN [None]
